FAERS Safety Report 4333079-6 (Version None)
Quarter: 2004Q2

REPORT INFORMATION
  Report Type: 
  Country: None (occurrence: None)
  Receive Date: 20040402
  Receipt Date: 20040402
  Transmission Date: 20050107
  Serious: Yes (Other)
  Sender: FDA-Public Use
  Company Number: None

PATIENT
  Age: 77 Year
  Sex: Male
  Weight: 88.4514 kg

DRUGS (1)
  1. GAMMAGARD [Suspect]
     Dosage: 30 GM QD X 5 DAYS
     Dates: start: 20040223, end: 20040227

REACTIONS (3)
  - PRURITUS [None]
  - RASH [None]
  - SKIN DISORDER [None]
